FAERS Safety Report 23332967 (Version 2)
Quarter: 2024Q1

REPORT INFORMATION
  Report Type: Spontaneous
  Country: US (occurrence: US)
  Receive Date: 20231222
  Receipt Date: 20240322
  Transmission Date: 20240410
  Serious: Yes (Death, Other)
  Sender: FDA-Public Use
  Company Number: US-SUN PHARMACEUTICAL INDUSTRIES LTD-2023R1-425032

PATIENT

DRUGS (1)
  1. PREDNISONE [Suspect]
     Active Substance: PREDNISONE
     Indication: Multivisceral transplantation
     Dosage: UNK
     Route: 065

REACTIONS (5)
  - Candida infection [Fatal]
  - Escherichia infection [Fatal]
  - Graft versus host disease [Unknown]
  - Pneumonia klebsiella [Fatal]
  - Septic shock [Fatal]
